FAERS Safety Report 4647423-3 (Version None)
Quarter: 2005Q2

REPORT INFORMATION
  Report Type: 
  Country: None (occurrence: None)
  Receive Date: 20050426
  Receipt Date: 20050412
  Transmission Date: 20051028
  Serious: No
  Sender: FDA-Public Use
  Company Number: 2005-00090

PATIENT
  Age: 64 Year
  Sex: Male
  Weight: 75 kg

DRUGS (5)
  1. VELCADE [Suspect]
     Indication: MULTIPLE MYELOMA
     Dosage: 2.60 MG, 2/WEEK, INTRAVENOUS
     Route: 042
     Dates: start: 20050111, end: 20050101
  2. EFFEXOR [Concomitant]
  3. LEXOMIL (BROMAZEPAM) [Concomitant]
  4. ALLOPURINOL [Concomitant]
  5. HEPT-A-MYL (HEPTAMINOL HYDROCHLORIDE) [Concomitant]

REACTIONS (2)
  - THROMBOCYTOPENIA [None]
  - THROMBOPHLEBITIS [None]
